FAERS Safety Report 25524106 (Version 1)
Quarter: 2025Q3

REPORT INFORMATION
  Report Type: Spontaneous
  Country: US (occurrence: None)
  Receive Date: 20250703
  Receipt Date: 20250703
  Transmission Date: 20251021
  Serious: Yes (Hospitalization)
  Sender: FDA-CTU
  Company Number: None

PATIENT
  Age: 68 Year
  Sex: Male
  Weight: 65.25 kg

DRUGS (2)
  1. PROLIA [Suspect]
     Active Substance: DENOSUMAB
     Indication: Osteoporosis
     Route: 058
     Dates: start: 20170405
  2. PROLIA [Concomitant]
     Active Substance: DENOSUMAB
     Dates: start: 20170405

REACTIONS (2)
  - Jaw fracture [None]
  - Mass [None]

NARRATIVE: CASE EVENT DATE: 20250613
